FAERS Safety Report 20858125 (Version 1)
Quarter: 2022Q2

REPORT INFORMATION
  Report Type: Spontaneous
  Country: GB (occurrence: GB)
  Receive Date: 20220521
  Receipt Date: 20220521
  Transmission Date: 20220720
  Serious: No
  Sender: FDA-Public Use
  Company Number: GB-LUPIN PHARMACEUTICALS INC.-2022-07256

PATIENT
  Sex: Female

DRUGS (2)
  1. CELECOXIB [Suspect]
     Active Substance: CELECOXIB
     Indication: Chronic paroxysmal hemicrania
     Dosage: 400 MILLIGRAM, QD
     Route: 065
  2. INDOMETHACIN [Concomitant]
     Active Substance: INDOMETHACIN
     Indication: Chronic paroxysmal hemicrania
     Dosage: 75 MILLIGRAM
     Route: 065

REACTIONS (2)
  - Chronic paroxysmal hemicrania [Unknown]
  - Condition aggravated [Unknown]
